FAERS Safety Report 9680875 (Version 2)
Quarter: 2013Q4

REPORT INFORMATION
  Report Type: Spontaneous
  Country: FR (occurrence: FR)
  Receive Date: 20131111
  Receipt Date: 20131113
  Transmission Date: 20140711
  Serious: Yes (Death)
  Sender: FDA-Public Use
  Company Number: FR-ASTELLAS-2013EU009622

PATIENT
  Sex: Female

DRUGS (6)
  1. MYCAMINE [Suspect]
     Indication: CANDIDA INFECTION
     Dosage: 100 MG, UNKNOWN/D
     Route: 042
     Dates: start: 20131016, end: 20131020
  2. CYCLOSPORINE [Concomitant]
     Indication: BONE MARROW TRANSPLANT
     Dosage: UNK
     Route: 065
  3. SOLUMEDROL [Concomitant]
     Indication: BONE MARROW TRANSPLANT
     Dosage: UNK
     Route: 065
  4. L THYROXINE [Concomitant]
     Indication: HYPOTHYROIDISM
     Dosage: UNK
     Route: 065
  5. NORADRENALINE                      /00127501/ [Concomitant]
     Indication: SEPTIC SHOCK
     Dosage: UNK
     Route: 065
  6. DOPAMINE [Concomitant]
     Indication: SEPTIC SHOCK
     Dosage: UNK
     Route: 065

REACTIONS (1)
  - Cardiac failure [Fatal]
